FAERS Safety Report 12393886 (Version 1)
Quarter: 2016Q2

REPORT INFORMATION
  Report Type: Spontaneous
  Country: US (occurrence: None)
  Receive Date: 20160520
  Receipt Date: 20160520
  Transmission Date: 20160815
  Serious: No
  Sender: FDA-Public Use
  Company Number: None

PATIENT
  Age: 58 Year
  Sex: Female
  Weight: 58.06 kg

DRUGS (6)
  1. PROMETHAZINE [Concomitant]
     Active Substance: PROMETHAZINE\PROMETHAZINE HYDROCHLORIDE
  2. CYMBALTA [Concomitant]
     Active Substance: DULOXETINE HYDROCHLORIDE
  3. HYDROXYZINE HCL 25 MG TABLET, 25 MG [Suspect]
     Active Substance: HYDROXYZINE HYDROCHLORIDE
     Indication: WITHDRAWAL SYNDROME
     Route: 048
     Dates: start: 20160517, end: 20160517
  4. LEVSIN [Concomitant]
     Active Substance: HYOSCYAMINE SULFATE
  5. ZANTAC [Concomitant]
     Active Substance: RANITIDINE HYDROCHLORIDE
  6. IBUPROPHINE [Concomitant]

REACTIONS (1)
  - Vision blurred [None]

NARRATIVE: CASE EVENT DATE: 20160518
